FAERS Safety Report 4766623-5 (Version None)
Quarter: 2005Q3

REPORT INFORMATION
  Report Type: 
  Country: None (occurrence: None)
  Receive Date: 20050908
  Receipt Date: 20050901
  Transmission Date: 20060218
  Serious: Yes (Hospitalization, Disabling, Other)
  Sender: FDA-Public Use
  Company Number: 2005104134

PATIENT
  Age: 71 Year
  Sex: Female
  Weight: 61.2356 kg

DRUGS (9)
  1. LIPITOR [Suspect]
     Indication: BLOOD CHOLESTEROL INCREASED
     Dosage: 40 MG (40 MG, 1 IN 1 D), ORAL
     Route: 048
     Dates: end: 20041101
  2. ZOCOR [Suspect]
     Indication: BLOOD CHOLESTEROL INCREASED
     Dosage: 80 MG (40 MG, 2 IN1 D)
     Dates: start: 20041101
  3. PLAVIX [Concomitant]
  4. LASIX [Concomitant]
  5. THYROID TAB [Concomitant]
  6. GLIPIZIDE [Concomitant]
  7. METFORMIN HCL [Concomitant]
  8. METOPROLOL TARTRATE [Concomitant]
  9. LOTENSIN [Concomitant]

REACTIONS (13)
  - AGITATION [None]
  - ARTERIAL REPAIR [None]
  - BACK DISORDER [None]
  - BALANCE DISORDER [None]
  - CEREBROVASCULAR ACCIDENT [None]
  - FOOT DEFORMITY [None]
  - MOVEMENT DISORDER [None]
  - MYOCARDIAL INFARCTION [None]
  - PAIN [None]
  - POST PROCEDURAL COMPLICATION [None]
  - SALIVARY GLAND DISORDER [None]
  - SURGERY [None]
  - WOUND INFECTION STAPHYLOCOCCAL [None]
